FAERS Safety Report 4807846-6 (Version None)
Quarter: 2005Q4

REPORT INFORMATION
  Report Type: 
  Country: None (occurrence: None)
  Receive Date: 20051020
  Receipt Date: 20051007
  Transmission Date: 20060501
  Serious: Yes (Hospitalization, Other)
  Sender: FDA-Public Use
  Company Number: 2005111363

PATIENT
  Age: 75 Year
  Sex: 0

DRUGS (15)
  1. PREDNISONE [Suspect]
     Indication: ILL-DEFINED DISORDER
     Dosage: 40 MG (40 MG, 1 IN 1 D)
     Dates: start: 20050709, end: 20050713
  2. IBUPROFEN [Suspect]
     Indication: PROPHYLAXIS
     Dosage: ^1200^ (3 IN 1 D), ORAL
     Route: 048
     Dates: start: 20050709, end: 20050711
  3. ALENDRONIC ACID (ALENDRONIC ACID) [Suspect]
     Indication: PROPHYLAXIS
     Dosage: 70 MG (70 MG, 1 IN 1 WK), ORAL
     Route: 048
     Dates: start: 20050701, end: 20050714
  4. PHENOBARBITAL TAB [Concomitant]
  5. MYSOLINE [Concomitant]
  6. TIOTROPIUM BROMIDE (TIOTROPIUM BROMIDE) [Concomitant]
  7. SALBUTAMOL (SALBUTAMOL) [Concomitant]
  8. ORAMORPH SR [Concomitant]
  9. RIBELFAN (AMINOPHENAZONE, NOSCAPINE, QUININE, SULFAMETHOXYPYRIDAZINE) [Concomitant]
  10. ADCAL-D3 (CALCIUM CARBONATE, COLECALCIFEROL) [Concomitant]
  11. SYMBICORT (BUDESONIDE, FORMOTEROL FUMARATE) [Concomitant]
  12. PARACETAMOL (PARACETAMOL) [Concomitant]
  13. LACTULOSE [Concomitant]
  14. ENOXAPARIN SODIUM [Concomitant]
  15. LANSOPRAZOLE [Concomitant]

REACTIONS (2)
  - OESOPHAGEAL ULCER [None]
  - REFLUX OESOPHAGITIS [None]
